FAERS Safety Report 5785148-1 (Version None)
Quarter: 2008Q2

REPORT INFORMATION
  Report Type: 
  Country: None (occurrence: None)
  Receive Date: 20080605
  Receipt Date: 20080422
  Transmission Date: 20081010
  Serious: No
  Sender: FDA-Public Use
  Company Number: A0724069A

PATIENT

DRUGS (1)
  1. ALLI [Suspect]
     Dates: start: 20080404

REACTIONS (3)
  - FLATULENCE [None]
  - GASTROINTESTINAL DISORDER [None]
  - RECTAL DISCHARGE [None]
